FAERS Safety Report 6089608-8 (Version None)
Quarter: 2009Q1

REPORT INFORMATION
  Report Type: 
  Country: None (occurrence: None)
  Receive Date: 20090224
  Receipt Date: 20090217
  Transmission Date: 20090719
  Serious: Yes (Other)
  Sender: FDA-Public Use
  Company Number: PHHY2009FR06017

PATIENT
  Sex: Male

DRUGS (3)
  1. EXFORGE [Suspect]
     Dosage: 160/5 MG
     Route: 048
  2. APROVEL [Concomitant]
  3. CALCIUM CHANNEL BLOCKERS [Concomitant]

REACTIONS (12)
  - ANXIETY [None]
  - ARTHRALGIA [None]
  - ASTHENIA [None]
  - DYSARTHRIA [None]
  - DYSPNOEA [None]
  - FACE OEDEMA [None]
  - HOT FLUSH [None]
  - MUSCLE SPASMS [None]
  - NAUSEA [None]
  - PALPITATIONS [None]
  - RASH MACULO-PAPULAR [None]
  - TREMOR [None]
